FAERS Safety Report 15307961 (Version 1)
Quarter: 2018Q3

REPORT INFORMATION
  Report Type: Report from Study
  Country: US (occurrence: US)
  Receive Date: 20180822
  Receipt Date: 20180822
  Transmission Date: 20181010
  Serious: Yes (Other)
  Sender: FDA-Public Use
  Company Number: US-SHIRE-US201831815

PATIENT
  Sex: Female

DRUGS (2)
  1. HUMAN IMMUNOGLOBULIN; HYALURONIDASE [Suspect]
     Active Substance: HUMAN IMMUNOGLOBULIN G\HYALURONIDASE RECOMBINANT HUMAN
     Indication: IMMUNODEFICIENCY COMMON VARIABLE
     Dosage: UNK
     Route: 065
  2. PREDNISONE. [Concomitant]
     Active Substance: PREDNISONE
     Indication: PRODUCT USED FOR UNKNOWN INDICATION

REACTIONS (12)
  - Appendix disorder [Unknown]
  - Arthralgia [Unknown]
  - Hypertension [Unknown]
  - Drug resistance [Unknown]
  - Hernia [Unknown]
  - Dyspnoea [Unknown]
  - Nephrolithiasis [Unknown]
  - Lung disorder [Unknown]
  - Frustration tolerance decreased [Unknown]
  - Immune system disorder [Unknown]
  - Blood cholesterol increased [Unknown]
  - Stress [Unknown]
